FAERS Safety Report 13009218 (Version 2)
Quarter: 2016Q4

REPORT INFORMATION
  Report Type: Spontaneous
  Country: US (occurrence: US)
  Receive Date: 20161208
  Receipt Date: 20161228
  Transmission Date: 20170207
  Serious: No
  Sender: FDA-Public Use
  Company Number: US-BAYER-2016-227264

PATIENT
  Age: 33 Year
  Sex: Female

DRUGS (7)
  1. TREPROSTINIL [Concomitant]
     Active Substance: TREPROSTINIL
     Dosage: 50 NG/KG/MIN, DAILY
     Route: 058
  2. TREPROSTINIL [Concomitant]
     Active Substance: TREPROSTINIL
     Dosage: 50 NG/KG/MIN, DAILY
     Route: 042
  3. RIOCIGUAT (GUANYLATE CYCLASE STIMULATOR) [Suspect]
     Active Substance: RIOCIGUAT
     Indication: PULMONARY ARTERIAL HYPERTENSION
     Dosage: 2.5 MG, TID
  4. TREPROSTINIL [Concomitant]
     Active Substance: TREPROSTINIL
     Dosage: 60 NG/KG/MIN, DAILY
     Route: 042
  5. MACITENTAN [Concomitant]
     Active Substance: MACITENTAN
     Dosage: 10 MG, QD
  6. NITRIC OXIDE. [Interacting]
     Active Substance: NITRIC OXIDE
     Indication: PULMONARY ARTERIAL HYPERTENSION
     Dosage: UNK
     Route: 055
  7. RIOCIGUAT (GUANYLATE CYCLASE STIMULATOR) [Suspect]
     Active Substance: RIOCIGUAT
     Indication: PULMONARY ARTERIAL HYPERTENSION
     Dosage: 0.5 MG, TID

REACTIONS (2)
  - Labelled drug-drug interaction medication error [None]
  - Therapeutic response unexpected [None]
